FAERS Safety Report 9120409 (Version 2)
Quarter: 2013Q1

REPORT INFORMATION
  Report Type: Spontaneous
  Country: US (occurrence: US)
  Receive Date: 20130226
  Receipt Date: 20130315
  Transmission Date: 20140127
  Serious: Yes (Other)
  Sender: FDA-Public Use
  Company Number: US-UCBSA-079079

PATIENT
  Age: 37 Year
  Sex: Male

DRUGS (1)
  1. CIMZIA [Suspect]
     Indication: RHEUMATOID ARTHRITIS
     Dates: start: 201208

REACTIONS (5)
  - Staphylococcal infection [Recovered/Resolved]
  - Laceration [Recovered/Resolved]
  - Influenza [Recovered/Resolved]
  - Feeling of body temperature change [Recovered/Resolved]
  - Abdominal pain upper [Recovered/Resolved]
